FAERS Safety Report 8416943-8 (Version None)
Quarter: 2012Q2

REPORT INFORMATION
  Report Type: 
  Country: None (occurrence: None)
  Receive Date: 20120606
  Receipt Date: 20120604
  Transmission Date: 20120825
  Serious: Yes (Hospitalization)
  Sender: FDA-Public Use
  Company Number: BE-PFIZER INC-2012106266

PATIENT
  Age: 58 Year
  Sex: Female

DRUGS (11)
  1. OMEPRAZOLE [Concomitant]
     Dosage: UNK
  2. MOTENS [Concomitant]
     Dosage: UNK
  3. MEDROL [Suspect]
     Dosage: 4 MG, UNK
     Route: 048
  4. CALCIUM CARBONATE [Concomitant]
     Dosage: UNK
  5. D-CURE [Concomitant]
     Dosage: UNK
  6. ENOXAPARIN SODIUM [Concomitant]
     Dosage: UNK
  7. BELATACEPT [Suspect]
     Indication: RENAL TRANSPLANT
     Dosage: 1 DOSAGE FORM 1 DAY
     Route: 042
     Dates: start: 20061127
  8. CELLCEPT [Suspect]
     Dosage: 250 MG 1 DAY
     Route: 048
  9. ASPIRIN [Concomitant]
     Dosage: UNK
  10. LOSARTAN [Concomitant]
     Dosage: UNK
  11. LEVOFLOXACIN [Concomitant]
     Dosage: UNK

REACTIONS (1)
  - URINARY TRACT INFECTION [None]
